FAERS Safety Report 8721517 (Version 2)
Quarter: 2012Q4

REPORT INFORMATION
  Report Type: 
  Country: US (occurrence: US)
  Receive Date: 20120813
  Receipt Date: 20121108
  Transmission Date: 20130627
  Serious: Yes (Hospitalization, Other)
  Sender: FDA-Public Use
  Company Number: US-RB-043253-12

PATIENT
  Age: 40 Year
  Sex: Male

DRUGS (1)
  1. SUBOXONE UNSPECIFIED [Suspect]
     Indication: PRODUCT USED FOR UNKNOWN INDICATION
     Dosage: Dosing details unknown
     Route: 065

REACTIONS (2)
  - Suicidal ideation [Recovered/Resolved]
  - Depression [Recovered/Resolved]
